FAERS Safety Report 6692493-4 (Version None)
Quarter: 2010Q2

REPORT INFORMATION
  Report Type: 
  Country: None (occurrence: None)
  Receive Date: 20100422
  Receipt Date: 20100414
  Transmission Date: 20101027
  Serious: Yes (Disabling)
  Sender: FDA-Public Use
  Company Number: B0621422A

PATIENT
  Sex: Female

DRUGS (2)
  1. PAROXETINE HCL [Suspect]
     Indication: DYSTHYMIC DISORDER
     Route: 048
  2. MENESIT [Concomitant]
     Indication: PARKINSONISM
     Dosage: 100MG PER DAY
     Route: 048

REACTIONS (1)
  - PARKINSONISM [None]
